FAERS Safety Report 5015354-5 (Version None)
Quarter: 2006Q2

REPORT INFORMATION
  Report Type: 
  Country: None (occurrence: None)
  Receive Date: 20060530
  Receipt Date: 20060530
  Transmission Date: 20061013
  Serious: Yes (Hospitalization, Disabling)
  Sender: FDA-Public Use
  Company Number: None

PATIENT
  Sex: Female
  Weight: 49.8957 kg

DRUGS (9)
  1. REVLAMID (LENALIDOMIDE) 5MG CELGENE [Suspect]
     Indication: MULTIPLE MYELOMA
     Dosage: 25MG   QH8   PO
     Route: 048
     Dates: start: 20060214, end: 20060319
  2. REVLAMID (LENALIDOMIDE) 5MG CELGENE [Suspect]
     Indication: RECURRENT CANCER
     Dosage: 25MG   QH8   PO
     Route: 048
     Dates: start: 20060214, end: 20060319
  3. MS CONTIN [Concomitant]
  4. ROXINOL [Concomitant]
  5. COUMADIN [Concomitant]
  6. AREDIA [Concomitant]
  7. LACTULOSE [Concomitant]
  8. PROCRIT [Concomitant]
  9. PRILOSEC [Concomitant]

REACTIONS (14)
  - ABDOMINAL PAIN UPPER [None]
  - BACK PAIN [None]
  - DEHYDRATION [None]
  - GASTROINTESTINAL MUCOSAL DISORDER [None]
  - HAEMATEMESIS [None]
  - INTERNATIONAL NORMALISED RATIO INCREASED [None]
  - MALIGNANT NEOPLASM PROGRESSION [None]
  - MULTIPLE MYELOMA [None]
  - NAUSEA [None]
  - NEUTROPENIA [None]
  - ORAL MUCOSAL EXFOLIATION [None]
  - RADIATION OESOPHAGITIS [None]
  - VOMITING [None]
  - WHITE BLOOD CELL COUNT DECREASED [None]
